FAERS Safety Report 8460080-3 (Version None)
Quarter: 2012Q2

REPORT INFORMATION
  Report Type: 
  Country: None (occurrence: None)
  Receive Date: 20120622
  Receipt Date: 20120618
  Transmission Date: 20120825
  Serious: Yes (Other)
  Sender: FDA-Public Use
  Company Number: DE-PFIZER INC-2012147131

PATIENT

DRUGS (1)
  1. GENOTROPIN [Suspect]
     Dosage: UNK
     Route: 051

REACTIONS (2)
  - MENTAL DISORDER [None]
  - AFFECTIVE DISORDER [None]
